FAERS Safety Report 8841611 (Version 1)
Quarter: 2012Q4

REPORT INFORMATION
  Report Type: 
  Country: US (occurrence: US)
  Receive Date: 20121015
  Receipt Date: 20121015
  Transmission Date: 20130627
  Serious: Yes (Other)
  Sender: FDA-Public Use
  Company Number: US-PFIZER INC-2012254218

PATIENT
  Age: 71 Year
  Sex: Female
  Weight: 61.22 kg

DRUGS (5)
  1. PRISTIQ [Suspect]
     Indication: DEPRESSION
     Dosage: 50 mg, 1x/day
     Route: 048
  2. CELEBREX [Suspect]
     Indication: PAIN
     Dosage: 200 mg, 1x/day
     Route: 048
  3. CELEBREX [Suspect]
     Indication: SPONDYLITIS
  4. TRIAMTERENE [Concomitant]
     Dosage: UNK
  5. LISINOPRIL [Concomitant]
     Dosage: UNK

REACTIONS (6)
  - Suicidal ideation [Unknown]
  - Arthropathy [Unknown]
  - Depressed mood [Unknown]
  - Movement disorder [Unknown]
  - Musculoskeletal stiffness [Unknown]
  - Pain [Unknown]
